FAERS Safety Report 25576775 (Version 1)
Quarter: 2025Q3

REPORT INFORMATION
  Report Type: Spontaneous
  Country: EU (occurrence: EU)
  Receive Date: 20250718
  Receipt Date: 20250718
  Transmission Date: 20251020
  Serious: Yes (Other)
  Sender: RANBAXY
  Company Number: EU-AFSSAPS-TS2025000355

PATIENT
  Age: 33 Year
  Sex: Male
  Weight: 72 kg

DRUGS (12)
  1. MORPHINE [Suspect]
     Active Substance: MORPHINE
     Indication: Pain
     Dosage: 4 MILLIGRAM, Q4H
     Route: 040
     Dates: start: 20250317, end: 20250317
  2. MIDAZOLAM [Suspect]
     Active Substance: MIDAZOLAM
     Indication: Anaesthesia
     Dosage: 3 MILLIGRAM, Q1H
     Route: 040
     Dates: start: 20250316, end: 20250318
  3. NOREPINEPHRINE BITARTRATE [Suspect]
     Active Substance: NOREPINEPHRINE BITARTRATE
     Indication: Anaesthesia
     Dosage: 1 MILLIGRAM, Q1H
     Route: 040
     Dates: start: 20250316, end: 20250317
  4. PROPOFOL [Suspect]
     Active Substance: PROPOFOL
     Indication: Anaesthesia
     Dosage: 40 MILLIGRAM, Q1H
     Route: 040
     Dates: start: 20250317, end: 20250317
  5. ENOXAPARIN [Suspect]
     Active Substance: ENOXAPARIN
     Indication: Prophylaxis
     Dosage: 4000 INTERNATIONAL UNIT, DAILY
     Route: 058
     Dates: start: 20250317, end: 20250324
  6. ACETAMINOPHEN [Suspect]
     Active Substance: ACETAMINOPHEN
     Indication: Prophylaxis
     Dosage: 1000 MILLIGRAM, TID
     Route: 040
     Dates: start: 20250317, end: 20250321
  7. CISATRACURIUM [Suspect]
     Active Substance: CISATRACURIUM
     Indication: Anaesthesia
     Dosage: 12 MILLIGRAM, Q1H
     Route: 040
     Dates: start: 20250316, end: 20250317
  8. FENTANYL [Suspect]
     Active Substance: FENTANYL
     Indication: Pain
     Dosage: 50 MCG, Q1H
     Route: 040
     Dates: start: 20250316, end: 20250318
  9. VITAMIN K [Suspect]
     Active Substance: PHYTONADIONE
     Indication: Coagulation factor V level decreased
     Route: 040
     Dates: start: 20250318, end: 20250318
  10. NEFOPAM [Suspect]
     Active Substance: NEFOPAM
     Indication: Pain
     Route: 040
     Dates: start: 20250317, end: 20250318
  11. POTASSIUM [Suspect]
     Active Substance: POTASSIUM
     Indication: Hypokalaemia
     Route: 048
     Dates: start: 20250319, end: 20250319
  12. HUMALOG [Suspect]
     Active Substance: INSULIN LISPRO
     Indication: Product used for unknown indication
     Dosage: 2 INTERNATIONAL UNIT, Q1H
     Route: 048
     Dates: start: 20250319, end: 20250320

REACTIONS (1)
  - Pancreatitis acute [Recovering/Resolving]

NARRATIVE: CASE EVENT DATE: 20250319
